FAERS Safety Report 6064984-0 (Version None)
Quarter: 2009Q1

REPORT INFORMATION
  Report Type: 
  Country: None (occurrence: None)
  Receive Date: 20090204
  Receipt Date: 20090131
  Transmission Date: 20090719
  Serious: Yes (Death)
  Sender: FDA-Public Use
  Company Number: IN-ELI_LILLY_AND_COMPANY-IN200902000018

PATIENT
  Sex: Male

DRUGS (1)
  1. GEMCITE [Suspect]
     Dosage: UNK, UNKNOWN
     Route: 065
     Dates: start: 20081013

REACTIONS (2)
  - DEATH [None]
  - DRUG INTOLERANCE [None]
